FAERS Safety Report 4292950-4 (Version None)
Quarter: 2004Q1

REPORT INFORMATION
  Report Type: 
  Country: None (occurrence: None)
  Receive Date: 20040212
  Receipt Date: 20030731
  Transmission Date: 20041129
  Serious: No
  Sender: FDA-Public Use
  Company Number: US-GLAXOSMITHKLINE-A0418995A

PATIENT
  Age: 23 Year
  Sex: Male

DRUGS (1)
  1. PAXIL [Suspect]
     Indication: PANIC DISORDER
     Dosage: 40MG UNKNOWN
     Route: 048
     Dates: start: 20020901

REACTIONS (1)
  - BLOOD ALKALINE PHOSPHATASE INCREASED [None]
